FAERS Safety Report 18005972 (Version 1)
Quarter: 2020Q3

REPORT INFORMATION
  Report Type: Spontaneous
  Country: US (occurrence: US)
  Receive Date: 20200709
  Receipt Date: 20200709
  Transmission Date: 20201103
  Serious: Yes (Hospitalization)
  Sender: FDA-Public Use
  Company Number: None

PATIENT
  Age: 76 Year
  Sex: Female

DRUGS (20)
  1. LETAIRIS [Suspect]
     Active Substance: AMBRISENTAN
     Indication: PULMONARY ARTERIAL HYPERTENSION
     Route: 048
  2. CALCIUM [Concomitant]
     Active Substance: CALCIUM
  3. OCUVITE ADULT FORMULA [Concomitant]
  4. TYLENOL PM EXTRA STRENGTH [Concomitant]
     Active Substance: ACETAMINOPHEN\DIPHENHYDRAMINE HYDROCHLORIDE
  5. SILDENAFIL. [Concomitant]
     Active Substance: SILDENAFIL
  6. VITAMIN B12 [Concomitant]
     Active Substance: CYANOCOBALAMIN
  7. KLOR?CON [Concomitant]
     Active Substance: POTASSIUM CHLORIDE
  8. ATORVASTATIN [Concomitant]
     Active Substance: ATORVASTATIN
  9. MAGNESIUM [Concomitant]
     Active Substance: MAGNESIUM
  10. FUROSEMIDE. [Concomitant]
     Active Substance: FUROSEMIDE
  11. SOTALOL. [Concomitant]
     Active Substance: SOTALOL
  12. ASPIRIN ADULT LOW DOSE [Concomitant]
     Active Substance: ASPIRIN
  13. NYSTATIN. [Concomitant]
     Active Substance: NYSTATIN
  14. IPRATROPIUM BROMIDE. [Concomitant]
     Active Substance: IPRATROPIUM BROMIDE
  15. LAXATIVE [Concomitant]
     Active Substance: UNSPECIFIED INGREDIENT
  16. LOVENOX [Concomitant]
     Active Substance: ENOXAPARIN SODIUM
  17. IRON [Concomitant]
     Active Substance: IRON
  18. LEVOTHYROXINE. [Concomitant]
     Active Substance: LEVOTHYROXINE
  19. WARFARIN [Concomitant]
     Active Substance: WARFARIN
  20. DILTIAZEM ER BEADS [Concomitant]

REACTIONS (2)
  - Rectal haemorrhage [None]
  - Anaemia [None]

NARRATIVE: CASE EVENT DATE: 20200709
